FAERS Safety Report 18492282 (Version 1)
Quarter: 2020Q4

REPORT INFORMATION
  Report Type: Spontaneous
  Country: US (occurrence: US)
  Receive Date: 20201111
  Receipt Date: 20201111
  Transmission Date: 20210114
  Serious: Yes (Hospitalization)
  Sender: FDA-Public Use
  Company Number: US-ELI_LILLY_AND_COMPANY-US202011001741

PATIENT
  Age: 24 Year
  Sex: Male

DRUGS (1)
  1. HUMATROPE [Suspect]
     Active Substance: SOMATROPIN
     Indication: PRODUCT USED FOR UNKNOWN INDICATION
     Dosage: UNK UNK, OTHER
     Route: 065
     Dates: start: 19930524

REACTIONS (4)
  - Pyrexia [Recovered/Resolved]
  - Blood glucose decreased [Recovered/Resolved]
  - Food poisoning [Recovered/Resolved]
  - Pyrexia [Recovered/Resolved]

NARRATIVE: CASE EVENT DATE: 201802
